FAERS Safety Report 13943425 (Version 2)
Quarter: 2017Q4

REPORT INFORMATION
  Report Type: Spontaneous
  Country: RU (occurrence: RU)
  Receive Date: 20170907
  Receipt Date: 20171130
  Transmission Date: 20180320
  Serious: Yes (Other)
  Sender: FDA-Public Use
  Company Number: RU-BAYER-2017-156946

PATIENT
  Age: 39 Year
  Sex: Female
  Weight: 67 kg

DRUGS (1)
  1. YARINA [Suspect]
     Active Substance: DROSPIRENONE\ETHINYL ESTRADIOL
     Indication: ENDOMETRIOSIS
     Dosage: UNK
     Route: 048
     Dates: start: 2004

REACTIONS (8)
  - Leiomyoma [Recovered/Resolved]
  - Nephrolithiasis [Not Recovered/Not Resolved]
  - Off label use [None]
  - Pain in extremity [Recovered/Resolved]
  - Abnormal withdrawal bleeding [Recovered/Resolved]
  - Intentional product misuse [None]
  - Product use in unapproved indication [None]
  - Metrorrhagia [Recovered/Resolved]

NARRATIVE: CASE EVENT DATE: 200908
